FAERS Safety Report 9643082 (Version 6)
Quarter: 2013Q4

REPORT INFORMATION
  Report Type: Spontaneous
  Country: US (occurrence: US)
  Receive Date: 20131024
  Receipt Date: 20131211
  Transmission Date: 20140711
  Serious: Yes (Other)
  Sender: FDA-Public Use
  Company Number: US-JNJFOC-20131009817

PATIENT
  Age: 61 Year
  Sex: Female
  Weight: 117.03 kg

DRUGS (11)
  1. XARELTO [Suspect]
     Indication: PULMONARY EMBOLISM
     Route: 048
     Dates: start: 20130131, end: 20131001
  2. CYCLOBENZAPRINE [Concomitant]
     Dosage: AT 8PM STAT DOSE
     Route: 048
     Dates: start: 20130926
  3. ZIAC [Concomitant]
     Dosage: 10MG/6.25G DAILY
     Route: 048
     Dates: start: 20080917
  4. PROVENTIL INHALER [Concomitant]
     Dosage: 2 PUFFS
     Route: 048
     Dates: start: 20100508
  5. NIASPAN [Concomitant]
     Route: 048
     Dates: start: 20081029
  6. LORTAB [Concomitant]
     Dosage: 5G/ 500G
     Route: 048
     Dates: start: 20120127
  7. ELAVIL [Concomitant]
     Route: 048
     Dates: start: 20131001
  8. ADVAIR DISKUS [Concomitant]
     Dosage: 250/50 PUFF
     Route: 065
     Dates: start: 20120612
  9. PHENTERMINE [Concomitant]
     Route: 048
     Dates: start: 20130802
  10. CALCIUM [Concomitant]
     Route: 048
     Dates: start: 2008
  11. SIMVASTATIN [Concomitant]
     Route: 048
     Dates: start: 20090410

REACTIONS (1)
  - Pulmonary alveolar haemorrhage [Recovering/Resolving]
